FAERS Safety Report 5393991-6 (Version None)
Quarter: 2007Q3

REPORT INFORMATION
  Report Type: 
  Country: None (occurrence: None)
  Receive Date: 20070723
  Receipt Date: 20061227
  Transmission Date: 20080115
  Serious: No
  Sender: FDA-Public Use
  Company Number: A0632611A

PATIENT
  Age: 75 Year
  Sex: Female

DRUGS (5)
  1. AVANDIA [Suspect]
     Dosage: 2MG TWICE PER DAY
     Route: 048
  2. PRANDIN [Concomitant]
  3. MICARDIS HCT [Concomitant]
  4. LEVOXYL [Concomitant]
  5. PAXIL [Concomitant]

REACTIONS (2)
  - FATIGUE [None]
  - OEDEMA PERIPHERAL [None]
